FAERS Safety Report 4469374-X (Version None)
Quarter: 2004Q4

REPORT INFORMATION
  Report Type: 
  Country: None (occurrence: None)
  Receive Date: 20041008
  Receipt Date: 20040329
  Transmission Date: 20050328
  Serious: No
  Sender: FDA-Public Use
  Company Number: US-BRISTOL-MYERS SQUIBB COMPANY-12545760

PATIENT
  Age: 69 Year
  Sex: Female
  Weight: 136 kg

DRUGS (3)
  1. AVAPRO [Suspect]
     Indication: HYPERTENSION
     Route: 048
  2. LOVASTATIN [Concomitant]
     Route: 048
  3. MOBIC [Concomitant]
     Route: 048

REACTIONS (1)
  - COUGH [None]
